FAERS Safety Report 7892328-8 (Version None)
Quarter: 2011Q4

REPORT INFORMATION
  Report Type: 
  Country: None (occurrence: None)
  Receive Date: 20111101
  Receipt Date: 20111020
  Transmission Date: 20120403
  Serious: Yes (Hospitalization)
  Sender: FDA-Public Use
  Company Number: 1067602

PATIENT
  Age: 61 Year
  Sex: Female
  Weight: 53.5244 kg

DRUGS (1)
  1. A-METHAPRED [Suspect]
     Indication: PRODUCT USED FOR UNKNOWN INDICATION
     Dosage: OTHER

REACTIONS (3)
  - RENAL FAILURE [None]
  - DRUG DOSE OMISSION [None]
  - PRODUCT CONTAINER ISSUE [None]
